FAERS Safety Report 7316618-2 (Version None)
Quarter: 2011Q1

REPORT INFORMATION
  Report Type: 
  Country: None (occurrence: None)
  Receive Date: 20110226
  Receipt Date: 20101117
  Transmission Date: 20110831
  Serious: No
  Sender: FDA-Public Use
  Company Number: US-ALLERGAN-1009350US

PATIENT
  Age: 59 Year
  Sex: Female

DRUGS (3)
  1. UNSPECIFIED MEDICATION [Concomitant]
     Indication: MUSCLE SPASTICITY
  2. BACLOFEN [Concomitant]
     Indication: MUSCLE SPASTICITY
     Dosage: 50 MG, TID
     Route: 048
  3. BOTOXA? [Suspect]
     Indication: MUSCLE SPASTICITY
     Dosage: 510 UNITS, SINGLE
     Route: 030
     Dates: start: 20100526, end: 20100526

REACTIONS (4)
  - URINARY INCONTINENCE [None]
  - DIZZINESS [None]
  - FATIGUE [None]
  - URINARY TRACT INFECTION [None]
